FAERS Safety Report 7658218-0 (Version None)
Quarter: 2011Q3

REPORT INFORMATION
  Report Type: 
  Country: None (occurrence: None)
  Receive Date: 20110805
  Receipt Date: 20110726
  Transmission Date: 20111222
  Serious: Yes (Hospitalization, Other)
  Sender: FDA-Public Use
  Company Number: US-JNJFOC-20110512251

PATIENT
  Sex: Female
  Weight: 63.5 kg

DRUGS (3)
  1. EFFEXOR [Concomitant]
     Route: 065
  2. TOPAMAX [Suspect]
     Indication: MIGRAINE
     Route: 048
  3. TOPAMAX [Suspect]
     Route: 048

REACTIONS (3)
  - NEPHROLITHIASIS [None]
  - CALCULUS URETERIC [None]
  - HYDRONEPHROSIS [None]
